FAERS Safety Report 24846059 (Version 1)
Quarter: 2025Q1

REPORT INFORMATION
  Report Type: Spontaneous
  Country: US (occurrence: None)
  Receive Date: 20250115
  Receipt Date: 20250115
  Transmission Date: 20250408
  Serious: Yes (Other)
  Sender: FDA-CTU
  Company Number: None

PATIENT
  Age: 47 Year
  Sex: Female
  Weight: 73.35 kg

DRUGS (2)
  1. WEGOVY [Suspect]
     Active Substance: SEMAGLUTIDE
     Indication: Weight control
     Dates: start: 20240512, end: 20241209
  2. ESTRADIOL [Suspect]
     Active Substance: ESTRADIOL

REACTIONS (6)
  - Ovarian cyst ruptured [None]
  - Renal disorder [None]
  - Haemangioma of liver [None]
  - Bartholin^s cyst [None]
  - Hormone level abnormal [None]
  - Therapy cessation [None]

NARRATIVE: CASE EVENT DATE: 20241210
